FAERS Safety Report 19699874 (Version 3)
Quarter: 2021Q3

REPORT INFORMATION
  Report Type: Report from Study
  Country: JP (occurrence: JP)
  Receive Date: 20210813
  Receipt Date: 20210901
  Transmission Date: 20211014
  Serious: Yes (Other)
  Sender: FDA-Public Use
  Company Number: JP-JNJFOC-20210817025

PATIENT

DRUGS (2)
  1. METHOTREXATE. [Concomitant]
     Active Substance: METHOTREXATE
     Indication: RHEUMATOID ARTHRITIS
     Route: 065
  2. SIMPONI [Suspect]
     Active Substance: GOLIMUMAB
     Indication: RHEUMATOID ARTHRITIS
     Route: 058

REACTIONS (8)
  - Pancytopenia [Recovering/Resolving]
  - Bladder cancer [Unknown]
  - Pneumonia [Recovering/Resolving]
  - Cellulitis [Recovering/Resolving]
  - Rash [Recovering/Resolving]
  - Malaise [Recovering/Resolving]
  - Arthritis bacterial [Recovering/Resolving]
  - Therapeutic response decreased [Unknown]
